FAERS Safety Report 8839329 (Version 1)
Quarter: 2012Q4

REPORT INFORMATION
  Report Type: 
  Country: GB (occurrence: GB)
  Receive Date: 20121015
  Receipt Date: 20121015
  Transmission Date: 20130627
  Serious: Yes (Disabling, Other)
  Sender: FDA-Public Use
  Company Number: GB-ACCORD-014927

PATIENT
  Age: 60 Year
  Sex: Female
  Weight: 75 kg

DRUGS (4)
  1. OLMESARTAN MEDOXOMIL [Concomitant]
     Dates: start: 20120607
  2. LETROZOLE [Suspect]
     Indication: DRUG USE FOR UNKNOWN INDICATION
     Dates: start: 20120607
  3. AVEENO [Concomitant]
     Dates: start: 20120626
  4. ITRACONAZOLE [Concomitant]
     Dates: start: 20120824

REACTIONS (2)
  - Urticaria [Unknown]
  - Product substitution issue [Unknown]
